FAERS Safety Report 9646137 (Version 2)
Quarter: 2015Q2

REPORT INFORMATION
  Report Type: Spontaneous
  Country: MA (occurrence: MA)
  Receive Date: 20131025
  Receipt Date: 20150514
  Transmission Date: 20150821
  Serious: Yes (Death, Other)
  Sender: FDA-Public Use
  Company Number: PHHY2013MA116536

PATIENT
  Age: 45 Year
  Sex: Female

DRUGS (3)
  1. HYDROCORTISONE. [Suspect]
     Active Substance: HYDROCORTISONE
     Indication: PROPHYLAXIS
     Dosage: 15 MG, UNK
     Route: 037
  2. METHOTREXATE [Suspect]
     Active Substance: METHOTREXATE
     Indication: PROPHYLAXIS
     Dosage: 15 MG, UNK
     Route: 037
  3. CYTARABINE. [Suspect]
     Active Substance: CYTARABINE
     Indication: PROPHYLAXIS
     Dosage: 30 MG, UNK
     Route: 037

REACTIONS (5)
  - Paralysis flaccid [Unknown]
  - Bacterial infection [Fatal]
  - Septic shock [Fatal]
  - Myelopathy [Unknown]
  - Paraplegia [Unknown]
